FAERS Safety Report 10362626 (Version 1)
Quarter: 2014Q3

REPORT INFORMATION
  Report Type: Spontaneous
  Country: GB (occurrence: None)
  Receive Date: 20140728
  Receipt Date: 20140728
  Transmission Date: 20150326
  Serious: Yes (Hospitalization)
  Sender: FDA-Public Use
  Company Number: 228826LEO

PATIENT
  Age: 32 Year
  Sex: Female

DRUGS (4)
  1. DAIVOBET [Suspect]
     Active Substance: BETAMETHASONE DIPROPIONATE\CALCIPOTRIENE
     Indication: PRODUCT USED FOR UNKNOWN INDICATION
  2. NAPROXEN (NAPROXEN) [Concomitant]
     Active Substance: NAPROXEN
  3. ETANERCEPT (ETANERCEPT) [Suspect]
     Active Substance: ETANERCEPT
     Indication: PSORIATIC ARTHROPATHY
     Dosage: 1 IN 1 WK, SUBCUTANEOUS?
     Route: 058
     Dates: start: 20081001, end: 20140402
  4. OMEPRAZOLE (OMEPRAZOLE) [Concomitant]
     Active Substance: OMEPRAZOLE

REACTIONS (6)
  - Depressed mood [None]
  - Kidney small [None]
  - Nausea [None]
  - Renal failure acute [None]
  - Lethargy [None]
  - Hypercalcaemia [None]

NARRATIVE: CASE EVENT DATE: 20140327
